FAERS Safety Report 7144934-6 (Version None)
Quarter: 2010Q4

REPORT INFORMATION
  Report Type: 
  Country: None (occurrence: None)
  Receive Date: 20101123
  Receipt Date: 20101019
  Transmission Date: 20110411
  Serious: No
  Sender: FDA-Public Use
  Company Number: 020648

PATIENT
  Sex: Female
  Weight: 77.1 kg

DRUGS (8)
  1. CIMZIA [Suspect]
     Indication: RHEUMATOID ARTHRITIS
     Dosage: 400 MG 1X/2 WEEKS SUBCUTANEOUS
     Route: 058
     Dates: start: 20100901
  2. METHOTREXATE [Concomitant]
  3. CYMBALTA [Concomitant]
  4. PREDNISONE [Concomitant]
  5. ELAVIL [Concomitant]
  6. NEXIUM [Concomitant]
  7. SIMVASTATIN [Concomitant]
  8. LASIX [Concomitant]

REACTIONS (3)
  - OEDEMA PERIPHERAL [None]
  - ORAL DISCOMFORT [None]
  - STOMATITIS [None]
